FAERS Safety Report 4776414-7 (Version None)
Quarter: 2005Q3

REPORT INFORMATION
  Report Type: 
  Country: None (occurrence: None)
  Receive Date: 20050921
  Receipt Date: 20050908
  Transmission Date: 20060218
  Serious: Yes (Death, Life-Threatening)
  Sender: FDA-Public Use
  Company Number: HQWYE701812MAY05

PATIENT
  Age: 77 Year
  Sex: Male

DRUGS (7)
  1. AMIODARONE HCL [Suspect]
     Indication: VENTRICULAR TACHYCARDIA
     Dosage: 200 MG 1X PER 1 DAY, ORAL
     Route: 048
     Dates: start: 20050226, end: 20050314
  2. BAYASPIRINA             (ACETYLSALICYLIC ACID) [Concomitant]
  3. TICLOPIDINE HCL [Concomitant]
  4. OMEPERAL          (OMEPRAZOLE) [Concomitant]
  5. BLUTAL             (CHONDROITIN SULFATE SODIUM/FERIC CHLORIDE) [Concomitant]
  6. SULPERAZON             (CEFOPERAZONE SODIUM/SULBACTAM SODIUM) [Concomitant]
  7. GLUCOSE          (GLUCOSE) [Concomitant]

REACTIONS (7)
  - CARDIAC ARREST [None]
  - GENERAL PHYSICAL HEALTH DETERIORATION [None]
  - HAEMODIALYSIS [None]
  - INTERSTITIAL LUNG DISEASE [None]
  - RESPIRATORY ARREST [None]
  - SEPSIS [None]
  - URINARY RETENTION [None]
